FAERS Safety Report 14471067 (Version 2)
Quarter: 2019Q1

REPORT INFORMATION
  Report Type: Other
  Country: US (occurrence: US)
  Receive Date: 20180131
  Receipt Date: 20190126
  Transmission Date: 20190417
  Serious: No
  Sender: FDA-Public Use
  Company Number: US-ACORDA-ACO_144644_2017

PATIENT
  Sex: Male

DRUGS (2)
  1. AMPYRA [Suspect]
     Active Substance: DALFAMPRIDINE
     Dosage: 10 MG, BID
     Route: 048
  2. AMPYRA [Suspect]
     Active Substance: DALFAMPRIDINE
     Indication: PRODUCT USED FOR UNKNOWN INDICATION
     Dosage: 10 MG, BID
     Route: 048
     Dates: start: 201605, end: 201712

REACTIONS (6)
  - Mobility decreased [Recovered/Resolved]
  - Therapy cessation [Recovered/Resolved]
  - Pain [Recovered/Resolved]
  - Therapy cessation [Unknown]
  - Discomfort [Unknown]
  - Back pain [Not Recovered/Not Resolved]
